FAERS Safety Report 16177736 (Version 4)
Quarter: 2020Q2

REPORT INFORMATION
  Report Type: Spontaneous
  Country: CA (occurrence: CA)
  Receive Date: 20190410
  Receipt Date: 20200525
  Transmission Date: 20200713
  Serious: Yes (Hospitalization)
  Sender: FDA-Public Use
  Company Number: CA-ORION CORPORATION ORION PHARMA-TREX2018-3072

PATIENT
  Age: 66 Year
  Sex: Male

DRUGS (16)
  1. CLOBETASOL-MINOXIDIL-TRETINOIN [Concomitant]
     Route: 065
  2. METOPROLOL. [Suspect]
     Active Substance: METOPROLOL
     Indication: PSORIASIS
     Route: 065
     Dates: start: 2011
  3. COSENTYX [Suspect]
     Active Substance: SECUKINUMAB
     Route: 058
  4. METFORMIN HYDROCHLORIDE. [Suspect]
     Active Substance: METFORMIN HYDROCHLORIDE
     Indication: PRODUCT USED FOR UNKNOWN INDICATION
     Route: 065
     Dates: start: 201801
  5. AMOXICILLIN/CLAVULANATE POTASSIUM [Suspect]
     Active Substance: AMOXICILLIN\CLAVULANATE POTASSIUM
     Indication: STASIS DERMATITIS
     Route: 042
  6. FLUCLOXACILLIN [Suspect]
     Active Substance: FLUCLOXACILLIN
     Indication: STASIS DERMATITIS
     Route: 042
  7. COSENTYX [Suspect]
     Active Substance: SECUKINUMAB
     Route: 058
  8. ATORVASTATIN CALCIUM. [Suspect]
     Active Substance: ATORVASTATIN CALCIUM
     Indication: PRODUCT USED FOR UNKNOWN INDICATION
     Route: 065
     Dates: start: 2011
  9. BETAMETHASONE DIPROPIONATE/CALCIPOTRIOL [Concomitant]
     Active Substance: BETAMETHASONE DIPROPIONATE\CALCIPOTRIENE
     Route: 065
  10. METHOTREXATE (TRADE NAME UNKNOWN) [Suspect]
     Active Substance: METHOTREXATE
     Indication: PRODUCT USED FOR UNKNOWN INDICATION
     Route: 065
     Dates: start: 201801, end: 20180309
  11. PANTOPRAZOLE [Suspect]
     Active Substance: PANTOPRAZOLE
     Indication: PRODUCT USED FOR UNKNOWN INDICATION
     Route: 065
     Dates: start: 2011
  12. SORIATANE [Concomitant]
     Active Substance: ACITRETIN
     Route: 065
  13. COSENTYX [Suspect]
     Active Substance: SECUKINUMAB
     Indication: PSORIASIS
     Route: 058
     Dates: start: 20180501
  14. COSENTYX [Suspect]
     Active Substance: SECUKINUMAB
     Route: 058
  15. ACITRETIN. [Concomitant]
     Active Substance: ACITRETIN
     Route: 065
  16. PREDNISONE-RITUXIMAB [Concomitant]
     Route: 065
     Dates: start: 2016

REACTIONS (11)
  - Skin fissures [Recovering/Resolving]
  - Stasis dermatitis [Unknown]
  - Blood pressure increased [Unknown]
  - Body temperature decreased [Unknown]
  - Red blood cell sedimentation rate increased [Unknown]
  - Psoriasis [Recovering/Resolving]
  - Skin exfoliation [Recovering/Resolving]
  - Drug ineffective [Unknown]
  - Dry skin [Recovering/Resolving]
  - Skin lesion [Recovering/Resolving]
  - Body temperature increased [Unknown]

NARRATIVE: CASE EVENT DATE: 20180501
